FAERS Safety Report 5508734-2 (Version None)
Quarter: 2007Q4

REPORT INFORMATION
  Report Type: 
  Country: None (occurrence: None)
  Receive Date: 20071031
  Receipt Date: 20070607
  Transmission Date: 20080405
  Serious: No
  Sender: FDA-Public Use
  Company Number: 2007PV032997

PATIENT
  Age: 52 Year
  Sex: Female

DRUGS (7)
  1. SYMLIN [Suspect]
     Indication: TYPE 1 DIABETES MELLITUS
     Dosage: 30 MCG;PM;SC ; 15 MCG;QPM;SC ; 60 MCG;QAM;SC ; 45 MCG;QAM;SC ; 30 MCG;QAM;SC ; 15 MCG;QAM;SC
     Route: 058
     Dates: start: 20070504, end: 20070509
  2. SYMLIN [Suspect]
     Indication: TYPE 1 DIABETES MELLITUS
     Dosage: 30 MCG;PM;SC ; 15 MCG;QPM;SC ; 60 MCG;QAM;SC ; 45 MCG;QAM;SC ; 30 MCG;QAM;SC ; 15 MCG;QAM;SC
     Route: 058
     Dates: start: 20070510, end: 20070515
  3. SYMLIN [Suspect]
     Indication: TYPE 1 DIABETES MELLITUS
     Dosage: 30 MCG;PM;SC ; 15 MCG;QPM;SC ; 60 MCG;QAM;SC ; 45 MCG;QAM;SC ; 30 MCG;QAM;SC ; 15 MCG;QAM;SC
     Route: 058
     Dates: start: 20070516, end: 20070523
  4. SYMLIN [Suspect]
     Indication: TYPE 1 DIABETES MELLITUS
     Dosage: 30 MCG;PM;SC ; 15 MCG;QPM;SC ; 60 MCG;QAM;SC ; 45 MCG;QAM;SC ; 30 MCG;QAM;SC ; 15 MCG;QAM;SC
     Route: 058
     Dates: start: 20070531, end: 20070605
  5. SYMLIN [Suspect]
     Indication: TYPE 1 DIABETES MELLITUS
     Dosage: 30 MCG;PM;SC ; 15 MCG;QPM;SC ; 60 MCG;QAM;SC ; 45 MCG;QAM;SC ; 30 MCG;QAM;SC ; 15 MCG;QAM;SC
     Route: 058
     Dates: start: 20070524
  6. SYMLIN [Suspect]
     Indication: TYPE 1 DIABETES MELLITUS
     Dosage: 30 MCG;PM;SC ; 15 MCG;QPM;SC ; 60 MCG;QAM;SC ; 45 MCG;QAM;SC ; 30 MCG;QAM;SC ; 15 MCG;QAM;SC
     Route: 058
     Dates: start: 20070606
  7. NOVOLOG [Concomitant]

REACTIONS (2)
  - INJECTION SITE VESICLES [None]
  - PETECHIAE [None]
